FAERS Safety Report 7618161-X (Version None)
Quarter: 2011Q3

REPORT INFORMATION
  Report Type: 
  Country: None (occurrence: None)
  Receive Date: 20110718
  Receipt Date: 20110624
  Transmission Date: 20111222
  Serious: Yes (Death, Hospitalization)
  Sender: FDA-Public Use
  Company Number: US-GLAXOSMITHKLINE-A0806874A

PATIENT
  Age: 60 Year
  Sex: Female

DRUGS (10)
  1. INSULIN [Concomitant]
  2. NORVASC [Concomitant]
  3. COZAAR [Concomitant]
  4. WELLBUTRIN SR [Concomitant]
  5. AVANDIA [Suspect]
     Indication: DIABETES MELLITUS
     Dosage: 4MG PER DAY
     Route: 048
     Dates: start: 20030101, end: 20070501
  6. HYDROCHLOROTHIAZIDE [Concomitant]
  7. LYRICA [Concomitant]
  8. LEVOTHYROXINE SODIUM [Concomitant]
  9. ZOCOR [Concomitant]
  10. EFFEXOR XR [Concomitant]

REACTIONS (5)
  - EYE DISORDER [None]
  - HYPOXIC-ISCHAEMIC ENCEPHALOPATHY [None]
  - VISUAL IMPAIRMENT [None]
  - MYOCARDIAL INFARCTION [None]
  - VENTRICULAR FIBRILLATION [None]
